FAERS Safety Report 8456511-5 (Version None)
Quarter: 2012Q2

REPORT INFORMATION
  Report Type: 
  Country: None (occurrence: None)
  Receive Date: 20120621
  Receipt Date: 20120613
  Transmission Date: 20120825
  Serious: Yes (Hospitalization)
  Sender: FDA-Public Use
  Company Number: US-US-EMD SERONO, INC.-7016729

PATIENT
  Sex: Female
  Weight: 97 kg

DRUGS (22)
  1. TOPAMAX [Concomitant]
     Indication: MIGRAINE
     Route: 048
  2. MS CONTIN [Concomitant]
     Indication: PRODUCT USED FOR UNKNOWN INDICATION
  3. ROZEREM [Concomitant]
     Route: 048
  4. MAXAIR [Concomitant]
     Indication: ASTHMA
  5. PHENERGAN [Concomitant]
     Indication: PRODUCT USED FOR UNKNOWN INDICATION
     Route: 048
  6. REGLAN [Concomitant]
     Indication: NAUSEA
  7. NITROGLYCERIN [Concomitant]
     Indication: ARRHYTHMIA
  8. IMDUR [Concomitant]
     Route: 048
  9. PROTONIX [Concomitant]
     Indication: PRODUCT USED FOR UNKNOWN INDICATION
     Route: 048
  10. LOPRESSOR [Concomitant]
     Indication: HYPERTENSION
     Route: 048
  11. MIRAPEX [Concomitant]
     Indication: PRODUCT USED FOR UNKNOWN INDICATION
     Route: 048
  12. ELAVIL [Concomitant]
     Indication: PRODUCT USED FOR UNKNOWN INDICATION
     Route: 048
  13. HEPARIN [Concomitant]
     Indication: THROMBOSIS PROPHYLAXIS
  14. IMDUR [Concomitant]
     Indication: ARRHYTHMIA
  15. PROCARDIA XL [Concomitant]
     Indication: PRODUCT USED FOR UNKNOWN INDICATION
     Route: 048
  16. REBIF [Suspect]
     Indication: MULTIPLE SCLEROSIS
     Route: 058
     Dates: start: 20080407, end: 20120501
  17. ROZEREM [Concomitant]
     Indication: PRODUCT USED FOR UNKNOWN INDICATION
  18. TRANSFUSIONS [Concomitant]
     Indication: IRON DEFICIENCY ANAEMIA
  19. ASPIRIN [Concomitant]
     Indication: PRODUCT USED FOR UNKNOWN INDICATION
  20. SINGULAIR [Concomitant]
     Indication: PRODUCT USED FOR UNKNOWN INDICATION
     Route: 048
  21. LOPRESSOR [Concomitant]
     Route: 048
  22. ADVAIR DISKUS 100/50 [Concomitant]
     Indication: ASTHMA

REACTIONS (6)
  - OVARIAN CYST [None]
  - VASCULITIS [None]
  - CHEST PAIN [None]
  - BLOOD PRESSURE INCREASED [None]
  - CELLULITIS [None]
  - ABDOMINAL PAIN [None]
